FAERS Safety Report 25524659 (Version 1)
Quarter: 2025Q3

REPORT INFORMATION
  Report Type: Spontaneous
  Country: EU (occurrence: EU)
  Receive Date: 20250707
  Receipt Date: 20250707
  Transmission Date: 20251021
  Serious: Yes (Hospitalization)
  Sender: AUROBINDO
  Company Number: EU-002147023-NVSC2025DE096658

PATIENT
  Age: 61 Year
  Sex: Male
  Weight: 80 kg

DRUGS (9)
  1. LETROZOLE [Suspect]
     Active Substance: LETROZOLE
     Indication: Breast cancer
     Dosage: 2.5 MILLIGRAM, ONCE A DAY
     Route: 048
     Dates: start: 20231106
  2. ANASTROZOLE [Suspect]
     Active Substance: ANASTROZOLE
     Indication: Breast cancer
     Dosage: 1 MILLIGRAM, ONCE A DAY
     Route: 048
     Dates: start: 20240109, end: 20240205
  3. PALBOCICLIB [Suspect]
     Active Substance: PALBOCICLIB
     Indication: Breast cancer
     Dosage: 125 MILLIGRAM, ONCE A DAY (FROM DAY 1 TO DAY 21 EVERY  28-DAY CYCLE)
     Route: 048
     Dates: start: 20231116, end: 20250205
  4. PALBOCICLIB [Suspect]
     Active Substance: PALBOCICLIB
     Dosage: 100 MILLIGRAM, ONCE A DAY ((FROM DAY 1 TO DAY 21 EVERY  28-DAY CYCLE)
     Route: 048
     Dates: start: 20230222, end: 20230315
  5. PALBOCICLIB [Suspect]
     Active Substance: PALBOCICLIB
     Dosage: 75 MILLIGRAM, ONCE A DAY (FROM DAY 1 TO DAY 21 EVERY  28-DAY CYCLE)
     Route: 048
     Dates: start: 20230330
  6. GOSERELIN [Concomitant]
     Active Substance: GOSERELIN
     Indication: Prophylaxis
     Route: 058
     Dates: start: 20230109
  7. IBUPROFEN [Concomitant]
     Active Substance: IBUPROFEN
     Indication: Product used for unknown indication
     Route: 048
     Dates: start: 20240816, end: 20240822
  8. PANTOPRAZOLE SODIUM [Concomitant]
     Active Substance: PANTOPRAZOLE SODIUM
     Indication: Product used for unknown indication
     Route: 048
     Dates: start: 20240816, end: 20240822
  9. EDOXABAN TOSYLATE [Concomitant]
     Active Substance: EDOXABAN TOSYLATE
     Indication: Product used for unknown indication
     Route: 065
     Dates: start: 2016

REACTIONS (1)
  - Arthritis infective [Recovered/Resolved]

NARRATIVE: CASE EVENT DATE: 20250325
